FAERS Safety Report 18699614 (Version 8)
Quarter: 2021Q4

REPORT INFORMATION
  Report Type: Report from Study
  Country: CA (occurrence: CA)
  Receive Date: 20210104
  Receipt Date: 20211213
  Transmission Date: 20220303
  Serious: Yes (Hospitalization)
  Sender: FDA-Public Use
  Company Number: CA-002147023-NVSC2020CA299036

PATIENT

DRUGS (5)
  1. RUXOLITINIB [Suspect]
     Active Substance: RUXOLITINIB
     Indication: Myelofibrosis
     Dosage: 20 MG, BID  (STRENGTH 20 MG)
     Route: 048
     Dates: start: 20201102, end: 20201221
  2. RUXOLITINIB [Suspect]
     Active Substance: RUXOLITINIB
     Indication: Splenomegaly
     Dosage: 10 MG, BID (STRENGTH 10 MG)
     Route: 048
  3. RUXOLITINIB [Suspect]
     Active Substance: RUXOLITINIB
     Dosage: 10 MG, BID  (STRENGTH 10 MG)
     Route: 048
     Dates: start: 20201102, end: 20210816
  4. RUXOLITINIB [Suspect]
     Active Substance: RUXOLITINIB
     Dosage: 5 MG, QD (STRENGTH 5 MG)
     Route: 048
     Dates: start: 20210911
  5. RUXOLITINIB [Suspect]
     Active Substance: RUXOLITINIB
     Dosage: 5 MG, BID
     Route: 048
     Dates: start: 20201120

REACTIONS (20)
  - Viraemia [Unknown]
  - Hypotension [Unknown]
  - Platelet count decreased [Unknown]
  - Diarrhoea [Unknown]
  - Dizziness [Unknown]
  - Haemorrhage [Unknown]
  - Asthenia [Unknown]
  - Headache [Unknown]
  - Haemoglobin decreased [Unknown]
  - Spleen disorder [Unknown]
  - Inappropriate schedule of product administration [Unknown]
  - Muscle spasms [Recovered/Resolved]
  - Abdominal rigidity [Recovered/Resolved]
  - Pain [Unknown]
  - Red blood cell count decreased [Recovered/Resolved]
  - Blood potassium increased [Recovered/Resolved]
  - Nausea [Unknown]
  - Sleep disorder [Recovering/Resolving]
  - Pulmonary oedema [Unknown]
  - Fatigue [Not Recovered/Not Resolved]

NARRATIVE: CASE EVENT DATE: 20201103
